FAERS Safety Report 20093668 (Version 2)
Quarter: 2022Q1

REPORT INFORMATION
  Report Type: Report from Study
  Country: BR (occurrence: BR)
  Receive Date: 20211121
  Receipt Date: 20220315
  Transmission Date: 20220424
  Serious: Yes (Death, Other)
  Sender: FDA-Public Use
  Company Number: BR-NOVARTISPH-NVSC2021BR264768

PATIENT
  Age: 50 Year
  Sex: Female

DRUGS (8)
  1. FULVESTRANT [Suspect]
     Active Substance: FULVESTRANT
     Indication: Breast cancer
     Dosage: UNK
     Route: 065
     Dates: start: 201908
  2. EVEROLIMUS [Suspect]
     Active Substance: EVEROLIMUS
     Indication: Breast cancer
     Dosage: UNK
     Route: 065
  3. ALPELISIB [Suspect]
     Active Substance: ALPELISIB
     Indication: Breast cancer
     Dosage: 150 MG, BID
     Route: 065
     Dates: start: 202010
  4. DOXORUBICIN [Suspect]
     Active Substance: DOXORUBICIN
     Indication: Breast cancer
     Dosage: UNK, QW
     Route: 065
  5. LEVOTHYROXINE [Concomitant]
     Active Substance: LEVOTHYROXINE
     Indication: Hypothyroidism
     Dosage: 50 MCG
     Route: 065
  6. CYCLOPHOSPHAMIDE [Concomitant]
     Active Substance: CYCLOPHOSPHAMIDE
     Indication: Product used for unknown indication
     Dosage: UNK, QW
     Route: 065
  7. EXEMESTANE [Concomitant]
     Active Substance: EXEMESTANE
     Indication: Product used for unknown indication
     Dosage: UNK
     Route: 065
  8. ABEMACICLIB [Concomitant]
     Active Substance: ABEMACICLIB
     Indication: Product used for unknown indication
     Dosage: UNK
     Route: 065
     Dates: start: 201908

REACTIONS (19)
  - Death [Fatal]
  - Bone cancer [Unknown]
  - Breast cancer [Unknown]
  - Pericardial effusion [Unknown]
  - Metastases to central nervous system [Unknown]
  - Mediastinal disorder [Unknown]
  - Cough [Unknown]
  - Chest pain [Unknown]
  - Insomnia [Unknown]
  - Eating disorder [Unknown]
  - Eye pain [Unknown]
  - Eye disorder [Unknown]
  - Choroid neoplasm [Unknown]
  - Pleural effusion [Unknown]
  - General physical health deterioration [Unknown]
  - Carbohydrate antigen 15-3 increased [Unknown]
  - Hilar lymphadenopathy [Unknown]
  - PIK3CA-activated mutation [Unknown]
  - Therapy partial responder [Unknown]

NARRATIVE: CASE EVENT DATE: 20190801
